FAERS Safety Report 13909239 (Version 2)
Quarter: 2017Q4

REPORT INFORMATION
  Report Type: Spontaneous
  Country: IT (occurrence: IT)
  Receive Date: 20170828
  Receipt Date: 20171103
  Transmission Date: 20180320
  Serious: Yes (Life-Threatening)
  Sender: FDA-Public Use
  Company Number: IT-ROCHE-1982270

PATIENT
  Age: 81 Year
  Sex: Female

DRUGS (5)
  1. MABTHERA [Suspect]
     Active Substance: RITUXIMAB
     Indication: B-CELL LYMPHOMA
     Route: 041
     Dates: start: 20170619, end: 20170619
  2. LUVION (ITALY) [Concomitant]
     Dosage: 50 MG TABLETS 40 TABLETS PERIOD: 1 MONTH
     Route: 065
  3. LERCADIP [Concomitant]
     Active Substance: LERCANIDIPINE HYDROCHLORIDE
     Dosage: 14 FILM COATED TABLETS 10 MG PERIOD: 1 MONTH
     Route: 065
  4. MINIAS [Concomitant]
     Active Substance: LORMETAZEPAM
     Dosage: ^1 MG FILM COATED TABLETS^ 30 TABLETS PERIOD: 2YRS
     Route: 065
  5. PANTORC [Concomitant]
     Active Substance: PANTOPRAZOLE SODIUM
     Dosage: ^40 MG GASTRO-RESISTANT TABLETS^ PERIOD:1 MONTH
     Route: 065

REACTIONS (3)
  - Obstructive airways disorder [Recovered/Resolved]
  - Angioedema [Recovered/Resolved]
  - Dyspnoea [Recovered/Resolved]

NARRATIVE: CASE EVENT DATE: 20170619
